FAERS Safety Report 15595456 (Version 3)
Quarter: 2019Q1

REPORT INFORMATION
  Report Type: Report from Study
  Country: None (occurrence: AE)
  Receive Date: 20181107
  Receipt Date: 20190315
  Transmission Date: 20190417
  Serious: Yes (Hospitalization, Other)
  Sender: FDA-Public Use
  Company Number: AE-ABBVIE-18K-166-2545525-00

PATIENT
  Age: 28 Year
  Sex: Female
  Weight: 36 kg

DRUGS (3)
  1. HUMIRA [Suspect]
     Active Substance: ADALIMUMAB
     Indication: CROHN^S DISEASE
     Route: 058
     Dates: end: 2018
  2. TPN [Concomitant]
     Active Substance: AMINO ACIDS\DEXTROSE\ELECTROLYTES NOS\SOYBEAN OIL
     Indication: PRODUCT USED FOR UNKNOWN INDICATION
  3. HUMIRA [Suspect]
     Active Substance: ADALIMUMAB
     Route: 058
     Dates: start: 20180326

REACTIONS (9)
  - Post procedural complication [Unknown]
  - Exposure during pregnancy [Unknown]
  - Premature baby [Unknown]
  - Palpitations [Unknown]
  - Caesarean section [Unknown]
  - Live birth [Unknown]
  - Intestinal obstruction [Recovering/Resolving]
  - Jugular vein thrombosis [Recovered/Resolved]
  - Intestinal stenosis [Unknown]

NARRATIVE: CASE EVENT DATE: 2018
